FAERS Safety Report 18906432 (Version 1)
Quarter: 2021Q1

REPORT INFORMATION
  Report Type: Spontaneous
  Country: US (occurrence: US)
  Receive Date: 20210218
  Receipt Date: 20210218
  Transmission Date: 20210420
  Serious: No
  Sender: FDA-Public Use
  Company Number: US-ELI_LILLY_AND_COMPANY-US202102006928

PATIENT
  Age: 55 Year
  Sex: Male

DRUGS (1)
  1. ADCIRCA [Suspect]
     Active Substance: TADALAFIL
     Indication: PULMONARY HYPERTENSION
     Dosage: 20 MG, BID
     Route: 048
     Dates: start: 20190329

REACTIONS (2)
  - Dyspnoea [Unknown]
  - Product dose omission issue [Unknown]

NARRATIVE: CASE EVENT DATE: 20210209
